FAERS Safety Report 8042491-3 (Version None)
Quarter: 2012Q1

REPORT INFORMATION
  Report Type: 
  Country: None (occurrence: None)
  Receive Date: 20120112
  Receipt Date: 20120109
  Transmission Date: 20120608
  Serious: Yes (Hospitalization)
  Sender: FDA-Public Use
  Company Number: US-PFIZER INC-2012006849

PATIENT
  Sex: Female
  Weight: 57.143 kg

DRUGS (6)
  1. CYMBALTA [Concomitant]
     Dosage: UNK
  2. CLONAZEPAM [Concomitant]
     Dosage: UNK
  3. LYRICA [Suspect]
     Indication: PAIN
     Dosage: 225 MG, 2X/DAY
     Route: 048
  4. MOBIC [Concomitant]
     Dosage: UNK
  5. TRAMADOL [Concomitant]
     Dosage: UNK
  6. DEPAKOTE [Concomitant]
     Indication: MIGRAINE
     Dosage: UNK

REACTIONS (1)
  - DEPRESSION [None]
